FAERS Safety Report 6122521-6 (Version None)
Quarter: 2009Q1

REPORT INFORMATION
  Report Type: 
  Country: None (occurrence: None)
  Receive Date: 20090318
  Receipt Date: 20081215
  Transmission Date: 20090719
  Serious: No
  Sender: FDA-Public Use
  Company Number: US-ASTRAZENECA-2008UW28079

PATIENT
  Age: 83 Year
  Sex: Male
  Weight: 90.7 kg

DRUGS (15)
  1. SYMBICORT [Suspect]
     Indication: CHRONIC OBSTRUCTIVE PULMONARY DISEASE
     Dosage: 160/4.5 MCG, 2 PUFFS TWICE DAILY
     Route: 055
  2. SYMBICORT [Suspect]
     Dosage: 160/4.5 MCG, 1 PUFF TWICE DAILY
     Route: 055
  3. SPIRIVA [Concomitant]
  4. BP MED [Concomitant]
     Indication: BLOOD PRESSURE
  5. TOPROL-XL [Concomitant]
     Route: 048
  6. LIPITOR [Concomitant]
  7. PLAVIX [Concomitant]
  8. ASPIRIN [Concomitant]
  9. LEXAPRO [Concomitant]
  10. FOLIC ACID [Concomitant]
  11. FLOMAX [Concomitant]
  12. FOLLAGEL [Concomitant]
  13. AMBIEN [Concomitant]
  14. PREVACID [Concomitant]
  15. VITAMIN E [Concomitant]

REACTIONS (2)
  - DYSPNOEA [None]
  - INCORRECT DOSE ADMINISTERED [None]
